FAERS Safety Report 4827465-5 (Version None)
Quarter: 2005Q4

REPORT INFORMATION
  Report Type: 
  Country: None (occurrence: None)
  Receive Date: 20051114
  Receipt Date: 20051031
  Transmission Date: 20060501
  Serious: Yes (Death)
  Sender: FDA-Public Use
  Company Number: CA-ROCHE-423018

PATIENT
  Age: 73 Year
  Sex: Male
  Weight: 103 kg

DRUGS (7)
  1. INTERFERON ALFA-2A [Suspect]
     Route: 058
     Dates: start: 20050713, end: 20050729
  2. METOPROLOL [Concomitant]
     Route: 048
  3. ZOCOR [Concomitant]
     Route: 048
  4. AVAPRO [Concomitant]
     Route: 048
  5. IRON [Concomitant]
     Route: 048
  6. LOVENOX [Concomitant]
     Route: 048
  7. ANTICOAGULANTS [Concomitant]
     Route: 048

REACTIONS (3)
  - FALL [None]
  - MYOCARDIAL INFARCTION [None]
  - VENTRICULAR DYSFUNCTION [None]
